FAERS Safety Report 5356833-0 (Version None)
Quarter: 2007Q2

REPORT INFORMATION
  Report Type: 
  Country: None (occurrence: None)
  Receive Date: 20070614
  Receipt Date: 20070319
  Transmission Date: 20071010
  Serious: No
  Sender: FDA-Public Use
  Company Number: US-ASTRAZENECA-2007UW05455

PATIENT
  Age: 49 Year
  Sex: Female
  Weight: 99.8 kg

DRUGS (3)
  1. ATACAND [Suspect]
     Indication: HYPERTENSION
     Route: 048
     Dates: start: 20070201
  2. THYROID MEDICINE [Concomitant]
     Indication: HYPOTHYROIDISM
  3. TRIAMTERENE [Concomitant]

REACTIONS (3)
  - FATIGUE [None]
  - POLLAKIURIA [None]
  - SYNCOPE [None]
